FAERS Safety Report 17132324 (Version 1)
Quarter: 2019Q4

REPORT INFORMATION
  Report Type: Report from Study
  Country: JP (occurrence: JP)
  Receive Date: 20191210
  Receipt Date: 20191210
  Transmission Date: 20200122
  Serious: Yes (Life-Threatening, Hospitalization, Disabling)
  Sender: FDA-Public Use
  Company Number: JP-VIFOR (INTERNATIONAL) INC.-VIT-2019-16061

PATIENT
  Age: 50 Year
  Sex: Male
  Weight: 62.7 kg

DRUGS (13)
  1. FEBURIC [Concomitant]
     Active Substance: FEBUXOSTAT
     Route: 048
  2. CALCITRIOL. [Concomitant]
     Active Substance: CALCITRIOL
     Route: 042
     Dates: start: 20161007
  3. NIFEDIPINE. [Concomitant]
     Active Substance: NIFEDIPINE
     Route: 048
     Dates: start: 20160824, end: 20160927
  4. PRECIPITATED CALCIUM CARBONATE [Concomitant]
     Active Substance: CALCIUM CARBONATE
     Indication: HYPERPHOSPHATAEMIA
     Route: 048
  5. NIFEDIPINE. [Concomitant]
     Active Substance: NIFEDIPINE
     Route: 048
     Dates: start: 20160928
  6. AZELNIDIPINE [Concomitant]
     Active Substance: AZELNIDIPINE
     Route: 048
  7. ZOLPIDEM TARTRATE. [Concomitant]
     Active Substance: ZOLPIDEM TARTRATE
     Indication: INSOMNIA
     Route: 048
  8. AZILVA [Concomitant]
     Active Substance: AZILSARTAN KAMEDOXOMIL
     Route: 048
     Dates: start: 20160928
  9. SENNOSIDE [Concomitant]
     Active Substance: SENNOSIDES
     Route: 048
  10. MICARDIS [Concomitant]
     Active Substance: TELMISARTAN
     Route: 048
     Dates: start: 20160927
  11. VELPHORO [Suspect]
     Active Substance: FERRIC OXYHYDROXIDE
     Indication: HYPERPHOSPHATAEMIA
     Route: 048
     Dates: start: 20160706, end: 20161019
  12. EQUA [Concomitant]
     Active Substance: VILDAGLIPTIN
     Route: 048
  13. AMOXAN [Concomitant]
     Active Substance: AMOXAPINE
     Route: 048
     Dates: start: 20160914

REACTIONS (1)
  - Putamen haemorrhage [Recovered/Resolved]

NARRATIVE: CASE EVENT DATE: 20161019
